FAERS Safety Report 8746588 (Version 2)
Quarter: 2012Q4

REPORT INFORMATION
  Report Type: 
  Country: FR (occurrence: FR)
  Receive Date: 20120827
  Receipt Date: 20120904
  Transmission Date: 20130627
  Serious: Yes (Disabling)
  Sender: FDA-Public Use
  Company Number: FR-B.I. PHARMACEUTICALS,INC./RIDGEFIELD-2012-FF-01073FF

PATIENT
  Sex: Male
  Weight: 100 kg

DRUGS (4)
  1. PRADAXA [Suspect]
     Indication: ATRIAL FIBRILLATION
     Dosage: 220 mg
     Route: 048
     Dates: start: 201203
  2. RAMIPRIL [Concomitant]
     Indication: HYPERTENSION
     Dosage: 5 mg
     Route: 048
  3. MYTELASE [Concomitant]
     Indication: MUSCULAR WEAKNESS
     Dosage: 20 mg
     Route: 048
  4. VITAMIN B12 [Concomitant]
     Indication: ANAEMIA VITAMIN B12 DEFICIENCY
     Route: 030

REACTIONS (6)
  - Myasthenia gravis [Recovered/Resolved]
  - Abasia [Recovered/Resolved]
  - Dysphagia [Recovered/Resolved]
  - Eye disorder [Recovered/Resolved]
  - Myalgia [Recovered/Resolved]
  - Muscular weakness [Recovered/Resolved]
